FAERS Safety Report 4970133-X (Version None)
Quarter: 2006Q2

REPORT INFORMATION
  Report Type: 
  Country: None (occurrence: None)
  Receive Date: 20060406
  Receipt Date: 20060324
  Transmission Date: 20061013
  Serious: Yes (Death, Hospitalization)
  Sender: FDA-Public Use
  Company Number: 223422

PATIENT
  Age: 56 Year
  Sex: Male
  Weight: 54.1 kg

DRUGS (3)
  1. AVASTIN [Suspect]
     Indication: ADENOCARCINOMA PANCREAS
     Dosage: 10 MG/KG, Q2W, INTRAVENOUS
     Route: 042
     Dates: start: 20060206
  2. GEMCITABINE [Suspect]
     Indication: ADENOCARCINOMA PANCREAS
     Dosage: 1000 MG/M2, Q2W, INTRAVENOUS
     Route: 042
     Dates: start: 20060206
  3. OXALIPLATIN (OXALIPLATIN) [Suspect]
     Indication: ADENOCARCINOMA PANCREAS
     Dosage: 100 MG/M2, Q2W
     Dates: start: 20060206

REACTIONS (5)
  - GASTROINTESTINAL PERFORATION [None]
  - INFECTION [None]
  - NEUTROPHIL COUNT INCREASED [None]
  - PERITONITIS [None]
  - WHITE BLOOD CELL COUNT DECREASED [None]
